FAERS Safety Report 9774408 (Version 3)
Quarter: 2014Q1

REPORT INFORMATION
  Report Type: Spontaneous
  Country: US (occurrence: US)
  Receive Date: 20131220
  Receipt Date: 20140317
  Transmission Date: 20141002
  Serious: Yes (Hospitalization, Other)
  Sender: FDA-Public Use
  Company Number: US-JNJFOC-20131212384

PATIENT
  Age: 78 Year
  Sex: Male
  Weight: 104.33 kg

DRUGS (4)
  1. TRAMADOL/APAP [Suspect]
     Indication: PAIN
     Dosage: 37.5MG/325MG, 2 TABLETS EVERY 4 HOURS AS NEEDED
     Route: 048
     Dates: start: 20130829, end: 20131009
  2. PRIMIDONE [Concomitant]
     Indication: TREMOR
     Dosage: 50MG/3 TIMES A DAY
     Route: 048
  3. POTASSIUM [Concomitant]
     Indication: NUTRITIONAL SUPPLEMENTATION
     Dosage: DAILY
     Route: 048
     Dates: start: 20131025
  4. PROPRANOLOL [Concomitant]
     Indication: TREMOR
     Dosage: DAILY
     Route: 048

REACTIONS (4)
  - Renal failure [Recovered/Resolved]
  - Thrombosis [Not Recovered/Not Resolved]
  - Fluid retention [Recovering/Resolving]
  - Pulmonary thrombosis [Not Recovered/Not Resolved]
